FAERS Safety Report 12417304 (Version 1)
Quarter: 2016Q2

REPORT INFORMATION
  Report Type: Spontaneous
  Country: BE (occurrence: BE)
  Receive Date: 20160530
  Receipt Date: 20160530
  Transmission Date: 20160815
  Serious: Yes (Hospitalization, Other)
  Sender: FDA-Public Use
  Company Number: BE-JNJFOC-20141207515

PATIENT

DRUGS (6)
  1. HALOPERIDOL. [Suspect]
     Active Substance: HALOPERIDOL
     Indication: SCHIZOPHRENIA
     Route: 048
  2. HALOPERIDOL. [Suspect]
     Active Substance: HALOPERIDOL
     Indication: SCHIZOPHRENIFORM DISORDER
     Route: 048
  3. RISPERIDONE. [Suspect]
     Active Substance: RISPERIDONE
     Indication: SCHIZOPHRENIFORM DISORDER
     Route: 065
  4. HALOPERIDOL DECANOATE. [Suspect]
     Active Substance: HALOPERIDOL DECANOATE
     Indication: SCHIZOPHRENIFORM DISORDER
     Route: 030
  5. HALOPERIDOL DECANOATE. [Suspect]
     Active Substance: HALOPERIDOL DECANOATE
     Indication: SCHIZOPHRENIA
     Route: 030
  6. RISPERIDONE. [Suspect]
     Active Substance: RISPERIDONE
     Indication: SCHIZOPHRENIA
     Route: 065

REACTIONS (16)
  - Erectile dysfunction [Unknown]
  - Tremor [Unknown]
  - Dyskinesia [Unknown]
  - Weight increased [Unknown]
  - Akathisia [Unknown]
  - Libido decreased [Unknown]
  - Dystonia [Unknown]
  - Muscle rigidity [Unknown]
  - Anorgasmia [Unknown]
  - Amenorrhoea [Unknown]
  - Akinesia [Unknown]
  - Condition aggravated [Unknown]
  - Hypokinesia [Unknown]
  - Ejaculation disorder [Unknown]
  - Gynaecomastia [Unknown]
  - Galactorrhoea [Unknown]
